FAERS Safety Report 22970257 (Version 3)
Quarter: 2023Q4

REPORT INFORMATION
  Report Type: Report from Study
  Country: US (occurrence: US)
  Receive Date: 20230922
  Receipt Date: 20231021
  Transmission Date: 20240110
  Serious: Yes (Hospitalization, Other)
  Sender: FDA-Public Use
  Company Number: US-ACADIA PHARMACEUTICALS INC.-ACA-2022-PIM-003488

PATIENT
  Age: 83 Year
  Sex: Male

DRUGS (21)
  1. NUPLAZID [Suspect]
     Active Substance: PIMAVANSERIN TARTRATE
     Indication: Parkinson^s disease
     Dosage: 34 MILLIGRAM, QD
     Route: 048
     Dates: start: 202209
  2. NUPLAZID [Suspect]
     Active Substance: PIMAVANSERIN TARTRATE
     Indication: Parkinson^s disease psychosis
  3. ALBUTEROL SULFATE [Concomitant]
     Active Substance: ALBUTEROL SULFATE
  4. AMOXICILLIN [Concomitant]
     Active Substance: AMOXICILLIN
  5. BENZONATATE [Concomitant]
     Active Substance: BENZONATATE
  6. FAMOTIDINE [Concomitant]
     Active Substance: FAMOTIDINE
  7. MAGNESIUM [Concomitant]
     Active Substance: MAGNESIUM
  8. MIRALAX [Concomitant]
     Active Substance: POLYETHYLENE GLYCOL 3350
  9. RYTARY [Concomitant]
     Active Substance: CARBIDOPA\LEVODOPA
  10. SIMVASTATIN [Concomitant]
     Active Substance: SIMVASTATIN
  11. STOOL SOFTENER (DOCUSATE) [Concomitant]
     Active Substance: DOCUSATE
  12. VITAMIN D3 [Concomitant]
     Active Substance: CHOLECALCIFEROL
  13. BREO ELLIPTA [Concomitant]
     Active Substance: FLUTICASONE FUROATE\VILANTEROL TRIFENATATE
  14. BROMPHENIRAMINE\DEXTROMETHORPHAN\PSEUDOEPHEDRINE [Concomitant]
     Active Substance: BROMPHENIRAMINE\DEXTROMETHORPHAN\PSEUDOEPHEDRINE
  15. PREDNISONE [Concomitant]
     Active Substance: PREDNISONE
  16. CYANOCOBALAMIN [Concomitant]
     Active Substance: CYANOCOBALAMIN
  17. FISH OIL [Concomitant]
     Active Substance: FISH OIL
  18. ASPIRIN [Concomitant]
     Active Substance: ASPIRIN
  19. B COMPLEX [VITAMIN B NOS] [Concomitant]
  20. BROMPHENIRAMINE [Concomitant]
     Active Substance: BROMPHENIRAMINE
  21. PSEUDOEPHEDRINE [Concomitant]
     Active Substance: PSEUDOEPHEDRINE

REACTIONS (15)
  - Dizziness [Unknown]
  - Kidney infection [Recovering/Resolving]
  - Urinary incontinence [Not Recovered/Not Resolved]
  - Hospitalisation [Unknown]
  - Constipation [Unknown]
  - Confusional state [Unknown]
  - Hallucination [Unknown]
  - Abnormal behaviour [Unknown]
  - Memory impairment [Not Recovered/Not Resolved]
  - Mobility decreased [Not Recovered/Not Resolved]
  - Mood altered [Not Recovered/Not Resolved]
  - Resting tremor [Not Recovered/Not Resolved]
  - Visual impairment [Not Recovered/Not Resolved]
  - Feeding disorder [Recovered/Resolved]
  - Dyspnoea [Recovered/Resolved]

NARRATIVE: CASE EVENT DATE: 20230801
